FAERS Safety Report 12067733 (Version 1)
Quarter: 2016Q1

REPORT INFORMATION
  Report Type: Spontaneous
  Country: US (occurrence: US)
  Receive Date: 20160211
  Receipt Date: 20160211
  Transmission Date: 20160526
  Serious: No
  Sender: FDA-Public Use
  Company Number: US-AMNEAL PHARMACEUTICALS-2015AMN00099

PATIENT
  Sex: Female
  Weight: 79.37 kg

DRUGS (5)
  1. THERMACARE NECK WRAP [Concomitant]
  2. THERMACARE KNEE WRAPS [Concomitant]
  3. FLAXSEED [Concomitant]
     Active Substance: FLAX SEED
  4. FISH OIL [Concomitant]
     Active Substance: FISH OIL
  5. NAPROXEN. [Suspect]
     Active Substance: NAPROXEN
     Indication: ARTHRALGIA
     Dosage: UNKNOWN

REACTIONS (1)
  - Drug ineffective [Unknown]
